FAERS Safety Report 18168337 (Version 1)
Quarter: 2020Q3

REPORT INFORMATION
  Report Type: Spontaneous
  Country: US (occurrence: US)
  Receive Date: 20200818
  Receipt Date: 20200818
  Transmission Date: 20201103
  Serious: No
  Sender: FDA-Public Use
  Company Number: None

PATIENT
  Age: 67 Year
  Sex: Male
  Weight: 78.6 kg

DRUGS (15)
  1. TAFAMIDIS [Suspect]
     Active Substance: TAFAMIDIS MEGLUMINE
     Indication: CARDIAC AMYLOIDOSIS
     Route: 048
     Dates: start: 20200501, end: 20200807
  2. LOMOTRIL [Concomitant]
     Dates: start: 20200318
  3. BUMETANIDE 2MG [Concomitant]
     Dates: start: 20200324
  4. MIRALAX [Concomitant]
     Active Substance: POLYETHYLENE GLYCOL 3350
  5. MIRAPEX [Concomitant]
     Active Substance: PRAMIPEXOLE DIHYDROCHLORIDE
     Dates: start: 20200430
  6. RIFAXIMIN. [Concomitant]
     Active Substance: RIFAXIMIN
     Dates: start: 20200304
  7. NEURONTIN [Concomitant]
     Active Substance: GABAPENTIN
     Dates: start: 20190530
  8. SPIRONOLACTONE. [Concomitant]
     Active Substance: SPIRONOLACTONE
     Dates: start: 20200318
  9. PATISIRAN [Concomitant]
     Active Substance: PATISIRAN SODIUM
  10. LOPERAMIDE HCL [Concomitant]
     Active Substance: LOPERAMIDE HYDROCHLORIDE
  11. MULTIVITAMIN [Concomitant]
     Active Substance: VITAMINS
  12. ASPIRIN 81MG [Concomitant]
     Active Substance: ASPIRIN
  13. ZOFRAN [Concomitant]
     Active Substance: ONDANSETRON HYDROCHLORIDE
     Dates: start: 20191126
  14. NORCO [Concomitant]
     Active Substance: ACETAMINOPHEN\HYDROCODONE BITARTRATE
     Dates: start: 20200407
  15. LIDOCAINE?PRILOCAINE [Concomitant]
     Active Substance: LIDOCAINE\PRILOCAINE
     Dates: start: 20191228

REACTIONS (5)
  - Weight increased [None]
  - Flatulence [None]
  - Abdominal discomfort [None]
  - Gastrooesophageal reflux disease [None]
  - Nausea [None]

NARRATIVE: CASE EVENT DATE: 20200807
